FAERS Safety Report 20540629 (Version 1)
Quarter: 2022Q1

REPORT INFORMATION
  Report Type: Spontaneous
  Country: IT (occurrence: IT)
  Receive Date: 20220302
  Receipt Date: 20220302
  Transmission Date: 20220423
  Serious: Yes (Hospitalization)
  Sender: FDA-Public Use
  Company Number: IT-JNJFOC-20211118743

PATIENT
  Age: 33 Year
  Sex: Female

DRUGS (3)
  1. HALDOL [Interacting]
     Active Substance: HALOPERIDOL
     Indication: Product used for unknown indication
     Dosage: FORMULATION- 2MG/ML ORAL DROPS, 30ML BOTTLE SOLUTION?DOSE TAKEN- 40 DROPS
     Route: 048
  2. DIAZEPAM [Interacting]
     Active Substance: DIAZEPAM
     Indication: Product used for unknown indication
     Route: 048
  3. ALCOHOL [Interacting]
     Active Substance: ALCOHOL
     Indication: Product used for unknown indication
     Route: 048

REACTIONS (5)
  - Intentional product misuse [Unknown]
  - Drug interaction [Unknown]
  - Intentional self-injury [Unknown]
  - Dyskinesia [Unknown]
  - Dystonia [Unknown]
